FAERS Safety Report 26169670 (Version 1)
Quarter: 2025Q4

REPORT INFORMATION
  Report Type: Spontaneous
  Country: US (occurrence: None)
  Receive Date: 20251216
  Receipt Date: 20251216
  Transmission Date: 20260118
  Serious: Yes (Hospitalization)
  Sender: FDA-CTU
  Company Number: None

PATIENT
  Age: 64 Year
  Sex: Male
  Weight: 84 kg

DRUGS (9)
  1. TACROLIMUS [Suspect]
     Active Substance: TACROLIMUS
     Indication: Renal transplant
     Dosage: 1 MG TWICE A DAY ORAL
     Route: 048
     Dates: start: 20210105
  2. ASPIRIN [Concomitant]
     Active Substance: ASPIRIN
  3. CALCITRIOL [Concomitant]
     Active Substance: CALCITRIOL
  4. CARVEDILOL [Concomitant]
     Active Substance: CARVEDILOL
     Dosage: OTHER STRENGTH : 12.5;
  5. HYDRALAZINE [Concomitant]
     Active Substance: HYDRALAZINE HYDROCHLORIDE
  6. mag-oxide 400mg [Concomitant]
  7. nephplex rx tablets [Concomitant]
  8. SEVELAMER CARBONATE [Concomitant]
     Active Substance: SEVELAMER CARBONATE
  9. vitamin d2 50,000 iu capsules [Concomitant]

REACTIONS (4)
  - Respiratory disorder [None]
  - Musculoskeletal disorder [None]
  - Therapy interrupted [None]
  - Dialysis [None]

NARRATIVE: CASE EVENT DATE: 20251125
